FAERS Safety Report 22105781 (Version 2)
Quarter: 2023Q2

REPORT INFORMATION
  Report Type: Spontaneous
  Country: US (occurrence: US)
  Receive Date: 20230317
  Receipt Date: 20230621
  Transmission Date: 20230722
  Serious: No
  Sender: FDA-Public Use
  Company Number: US-SA-SAC20230314001620

PATIENT
  Age: 17 Year
  Sex: Male

DRUGS (1)
  1. DUPIXENT [Suspect]
     Active Substance: DUPILUMAB
     Indication: Eosinophilic oesophagitis
     Dosage: 300 MG, OTHER
     Route: 058
     Dates: start: 202212

REACTIONS (3)
  - Abdominal pain upper [Recovered/Resolved]
  - Injection site pain [Unknown]
  - Condition aggravated [Unknown]
